FAERS Safety Report 6124978-3 (Version None)
Quarter: 2009Q1

REPORT INFORMATION
  Report Type: 
  Country: None (occurrence: None)
  Receive Date: 20090319
  Receipt Date: 20090311
  Transmission Date: 20090719
  Serious: Yes (Other)
  Sender: FDA-Public Use
  Company Number: US-AMGEN-US337963

PATIENT
  Sex: Female

DRUGS (2)
  1. NPLATE [Suspect]
     Indication: IDIOPATHIC THROMBOCYTOPENIC PURPURA
     Route: 058
     Dates: start: 20081117, end: 20090212
  2. CORTICOSTEROIDS [Concomitant]
     Route: 065
     Dates: start: 19980627

REACTIONS (1)
  - DRUG INEFFECTIVE [None]
